FAERS Safety Report 16692989 (Version 2)
Quarter: 2019Q3

REPORT INFORMATION
  Report Type: Report from Study
  Country: PT (occurrence: PT)
  Receive Date: 20190812
  Receipt Date: 20190819
  Transmission Date: 20191004
  Serious: Yes (Death)
  Sender: FDA-Public Use
  Company Number: PT-PFIZER INC-2019340962

PATIENT
  Age: 61 Year
  Sex: Female
  Weight: 56 kg

DRUGS (2)
  1. SUNITINIB MALATE. [Suspect]
     Active Substance: SUNITINIB MALATE
     Indication: METASTATIC RENAL CELL CARCINOMA
     Dosage: 50 MG, DAILY (2/1 WEEKS)
     Route: 048
     Dates: start: 20190502
  2. VENTILAN [SALBUTAMOL] [Concomitant]
     Indication: ASTHMA
     Dosage: UNK
     Route: 055
     Dates: start: 2017, end: 20190707

REACTIONS (1)
  - Death [Fatal]

NARRATIVE: CASE EVENT DATE: 20190707
